FAERS Safety Report 20634490 (Version 3)
Quarter: 2022Q2

REPORT INFORMATION
  Report Type: Report from Study
  Country: US (occurrence: US)
  Receive Date: 20220325
  Receipt Date: 20220525
  Transmission Date: 20220720
  Serious: Yes (Death, Hospitalization)
  Sender: FDA-Public Use
  Company Number: US-NOVARTISPH-NVSC2022US067440

PATIENT
  Age: 63 Year
  Sex: Female
  Weight: 90.7 kg

DRUGS (4)
  1. MEKINIST [Suspect]
     Active Substance: TRAMETINIB DIMETHYL SULFOXIDE
     Indication: Endometrial cancer
     Dosage: 1 MG, QD
     Route: 048
     Dates: start: 20210915, end: 20211203
  2. AFINITOR [Suspect]
     Active Substance: EVEROLIMUS
     Indication: Endometrial cancer
     Dosage: 7.5 MG, QD
     Route: 048
     Dates: start: 20210604, end: 20210831
  3. KISQALI FEMARA CO-PACK [Suspect]
     Active Substance: LETROZOLE\RIBOCICLIB
     Indication: Endometrial cancer
     Dosage: 600 MG, QD, 21 DAYS ON/7 DAYS OFF LATER REDUCED TO 400 MG
     Route: 048
     Dates: start: 20180801, end: 20200214
  4. KISQALI FEMARA CO-PACK [Suspect]
     Active Substance: LETROZOLE\RIBOCICLIB
     Indication: Endometrial cancer
     Dosage: 600 MG, QD, 21 DAYS ON/7 DAYS OFF LATER REDUCED TO 400 MG
     Route: 048
     Dates: start: 20180801, end: 20200214

REACTIONS (3)
  - Endometrial cancer [Fatal]
  - Malignant neoplasm progression [Fatal]
  - Product use in unapproved indication [Unknown]

NARRATIVE: CASE EVENT DATE: 20220218
